FAERS Safety Report 11339589 (Version 2)
Quarter: 2015Q4

REPORT INFORMATION
  Report Type: Spontaneous
  Country: US (occurrence: US)
  Receive Date: 20150805
  Receipt Date: 20151102
  Transmission Date: 20160304
  Serious: No
  Sender: FDA-Public Use
  Company Number: US-LEO PHARMA-235779

PATIENT
  Age: 74 Year
  Sex: Female

DRUGS (1)
  1. PICATO [Suspect]
     Active Substance: INGENOL MEBUTATE
     Indication: ACTINIC CHEILITIS
     Route: 061
     Dates: start: 20150711, end: 20150713

REACTIONS (9)
  - Erythema [Recovered/Resolved]
  - Product use issue [Unknown]
  - Excoriation [Recovered/Resolved]
  - Application site pain [Recovered/Resolved]
  - Oral herpes [Recovered/Resolved]
  - Accidental exposure to product [Unknown]
  - Burning sensation [Recovered/Resolved]
  - Application site erosion [Recovered/Resolved]
  - Application site erythema [Recovered/Resolved]

NARRATIVE: CASE EVENT DATE: 20150712
